FAERS Safety Report 7253502 (Version 2)
Quarter: 2014Q2

REPORT INFORMATION
  Report Type: Spontaneous
  Country: US (occurrence: US)
  Receive Date: 20100124
  Receipt Date: 20140408
  Transmission Date: 20141212
  Serious: Yes (Hospitalization)
  Sender: FDA-Public Use
  Company Number: US-ALEXION-A200900967

PATIENT
  Age: 88 Year
  Sex: Male

DRUGS (8)
  1. SOLIRIS [Suspect]
     Indication: PAROXYSMAL NOCTURNAL HAEMOGLOBINURIA
     Dosage: 600 MG, QWK
     Route: 042
     Dates: start: 20080508, end: 20080529
  2. SOLIRIS [Suspect]
     Dosage: 900 MG, Q2WK
     Route: 042
     Dates: start: 20080605
  3. VITAMIN D                          /00107901/ [Concomitant]
     Dosage: 50000 IU, WEEKLY
     Route: 048
  4. VITAMIN B12                        /00056201/ [Concomitant]
     Dosage: 1000 UG, QD
     Route: 048
  5. FOLIC ACID [Concomitant]
     Dosage: 1 MG, QD
     Route: 048
  6. MULTIVITAMIN                       /00831701/ [Concomitant]
     Dosage: 1 TABLET, QD
     Route: 048
  7. MOTRIN [Concomitant]
     Dosage: UNK
     Route: 048
  8. COENZYME Q10                       /00517201/ [Concomitant]
     Dosage: UNK
     Route: 048

REACTIONS (3)
  - Pneumonia [Unknown]
  - Haemoglobinuria [Unknown]
  - Tooth fracture [Recovered/Resolved]
